FAERS Safety Report 9529474 (Version 3)
Quarter: 2014Q4

REPORT INFORMATION
  Report Type: Spontaneous
  Country: US (occurrence: US)
  Receive Date: 20130917
  Receipt Date: 20141226
  Transmission Date: 20150529
  Serious: Yes (Hospitalization, Other)
  Sender: FDA-Public Use
  Company Number: US-BAYER-2013-111079

PATIENT
  Age: 24 Year
  Sex: Female
  Weight: 79.37 kg

DRUGS (6)
  1. TRI-SPRINTEC [Concomitant]
     Active Substance: ETHINYL ESTRADIOL\NORGESTIMATE
     Dosage: UNK
     Dates: start: 20120523, end: 20120719
  2. KEFLEX [Concomitant]
     Active Substance: CEPHALEXIN
  3. ZOLOFT [Concomitant]
     Active Substance: SERTRALINE HYDROCHLORIDE
  4. ORTHO TRI CYCLEN [Concomitant]
     Active Substance: ETHINYL ESTRADIOL\NORGESTIMATE
  5. MIRENA [Suspect]
     Active Substance: LEVONORGESTREL
     Indication: CONTRACEPTION
     Dosage: 20 MCG/24HR, CONT
     Route: 015
     Dates: start: 20110726, end: 20120525
  6. ADVIL [Concomitant]
     Active Substance: IBUPROFEN

REACTIONS (10)
  - Menorrhagia [None]
  - Injury [None]
  - Pain [None]
  - Device breakage [None]
  - Medical device complication [None]
  - Uterine perforation [None]
  - Scar [Not Recovered/Not Resolved]
  - Genital haemorrhage [Recovered/Resolved]
  - Medical device pain [None]
  - Polymenorrhoea [None]

NARRATIVE: CASE EVENT DATE: 201108
